FAERS Safety Report 13684478 (Version 2)
Quarter: 2017Q2

REPORT INFORMATION
  Report Type: Spontaneous
  Country: US (occurrence: US)
  Receive Date: 20170623
  Receipt Date: 20170623
  Transmission Date: 20170830
  Serious: No
  Sender: FDA-Public Use
  Company Number: US-ASTELLAS-2016US028218

PATIENT
  Age: 90 Year
  Sex: Female

DRUGS (2)
  1. VESICARE [Suspect]
     Active Substance: SOLIFENACIN SUCCINATE
     Indication: HYPERTONIC BLADDER
     Route: 048
  2. VESICARE [Suspect]
     Active Substance: SOLIFENACIN SUCCINATE
     Indication: HYPERTONIC BLADDER
     Route: 065
     Dates: start: 201607, end: 20160718

REACTIONS (9)
  - Feeling hot [Unknown]
  - Peripheral swelling [Unknown]
  - Peripheral coldness [Unknown]
  - Erythema [Unknown]
  - Dizziness [Unknown]
  - Disorientation [Unknown]
  - Peripheral swelling [Recovering/Resolving]
  - Feeling abnormal [Unknown]
  - Drug ineffective [Unknown]

NARRATIVE: CASE EVENT DATE: 201607
